FAERS Safety Report 25268015 (Version 1)
Quarter: 2025Q2

REPORT INFORMATION
  Report Type: Spontaneous
  Country: US (occurrence: US)
  Receive Date: 20250505
  Receipt Date: 20250505
  Transmission Date: 20250717
  Serious: Yes (Hospitalization)
  Sender: MYLAN
  Company Number: US-MYLANLABS-2025M1037071

PATIENT
  Age: 38 Year
  Sex: Male

DRUGS (4)
  1. HALOPERIDOL [Suspect]
     Active Substance: HALOPERIDOL
     Indication: Schizophrenia
     Dosage: 10 MILLIGRAM, Q4H, RECEIVED AS NEEDED
  2. HALOPERIDOL [Suspect]
     Active Substance: HALOPERIDOL
     Dosage: 5 MILLIGRAM, Q4H (PRN), DOSE WAS DECREASED
  3. OLANZAPINE [Suspect]
     Active Substance: OLANZAPINE
     Indication: Schizophrenia
     Dosage: 20 MILLIGRAM, BID
  4. OLANZAPINE [Suspect]
     Active Substance: OLANZAPINE
     Dosage: 10 MILLIGRAM, DECREASED TO 10MG ONCE DAILY

REACTIONS (4)
  - Oedema peripheral [Recovering/Resolving]
  - Condition aggravated [Recovering/Resolving]
  - Abdominal distension [Recovering/Resolving]
  - Constipation [Recovering/Resolving]
